FAERS Safety Report 8886125 (Version 1)
Quarter: 2012Q4

REPORT INFORMATION
  Report Type: 
  Country: US (occurrence: US)
  Receive Date: 20121105
  Receipt Date: 20121105
  Transmission Date: 20130627
  Serious: Yes (Hospitalization)
  Sender: FDA-Public Use
  Company Number: US-ROCHE-1104873

PATIENT
  Sex: Female

DRUGS (6)
  1. PERJETA [Suspect]
     Indication: BREAST CANCER METASTATIC
     Route: 065
  2. HERCEPTIN [Suspect]
     Indication: BREAST CANCER METASTATIC
     Route: 065
     Dates: start: 20120817
  3. DOCETAXEL [Suspect]
     Indication: BREAST CANCER METASTATIC
     Route: 065
     Dates: start: 20120817
  4. VANCOMYCIN [Concomitant]
     Route: 050
     Dates: start: 20120913, end: 20120914
  5. LEVAQUIN [Concomitant]
     Route: 050
     Dates: start: 20120913, end: 20120921
  6. TAXOTERE [Concomitant]
     Route: 065
     Dates: start: 20120817, end: 20121005

REACTIONS (3)
  - Rash [Unknown]
  - Vitiligo [Recovered/Resolved]
  - Pneumonia [Unknown]
